FAERS Safety Report 24863690 (Version 1)
Quarter: 2025Q1

REPORT INFORMATION
  Report Type: Spontaneous
  Country: US (occurrence: US)
  Receive Date: 20250120
  Receipt Date: 20250120
  Transmission Date: 20250409
  Serious: No
  Sender: Phathom Pharmaceuticals
  Company Number: US-PHATHOM PHARMACEUTICALS INC.-2024PHT01571

PATIENT
  Age: 57 Year
  Sex: Female

DRUGS (1)
  1. VOQUEZNA [Suspect]
     Active Substance: VONOPRAZAN FUMARATE
     Indication: Dysphagia
     Dosage: 20 MG, 1X/DAY
     Route: 048

REACTIONS (4)
  - Chest pain [Unknown]
  - Urinary tract infection [Unknown]
  - Headache [Unknown]
  - Off label use [Unknown]
